FAERS Safety Report 7455298-2 (Version None)
Quarter: 2011Q2

REPORT INFORMATION
  Report Type: 
  Country: None (occurrence: None)
  Receive Date: 20110503
  Receipt Date: 20110429
  Transmission Date: 20111010
  Serious: Yes (Hospitalization)
  Sender: FDA-Public Use
  Company Number: PH-PFIZER INC-2011092281

PATIENT
  Age: 4 Day
  Sex: Female

DRUGS (1)
  1. NORVASC [Suspect]
     Indication: HYPERTENSION
     Dosage: UNKNOWN
     Route: 063

REACTIONS (2)
  - CYANOSIS [None]
  - DRUG EXPOSURE VIA BREAST MILK [None]
